FAERS Safety Report 7126507-4 (Version None)
Quarter: 2010Q4

REPORT INFORMATION
  Report Type: 
  Country: None (occurrence: None)
  Receive Date: 20101129
  Receipt Date: 20101117
  Transmission Date: 20110411
  Serious: Yes (Hospitalization)
  Sender: FDA-Public Use
  Company Number: GB-PFIZER INC-2010151613

PATIENT
  Sex: Male

DRUGS (1)
  1. PHENYTOIN SODIUM [Suspect]

REACTIONS (3)
  - GRAND MAL CONVULSION [None]
  - MUSCLE ATROPHY [None]
  - STATUS EPILEPTICUS [None]
